FAERS Safety Report 17398204 (Version 2)
Quarter: 2020Q1

REPORT INFORMATION
  Report Type: Spontaneous
  Country: US (occurrence: US)
  Receive Date: 20200210
  Receipt Date: 20200213
  Transmission Date: 20200409
  Serious: Yes (Hospitalization, Other)
  Sender: FDA-Public Use
  Company Number: US-PFIZER INC-2020054988

PATIENT
  Age: 30 Year
  Sex: Female
  Weight: 92 kg

DRUGS (3)
  1. PRISTIQ EXTENDED-RELEASE [Suspect]
     Active Substance: DESVENLAFAXINE SUCCINATE
     Dosage: 150 MG, DAILY [3 PILLS A DAY]
     Route: 048
  2. PRISTIQ EXTENDED-RELEASE [Suspect]
     Active Substance: DESVENLAFAXINE SUCCINATE
     Indication: AFFECTIVE DISORDER
     Dosage: 200 MG, DAILY [4 PILLS A DAY]
     Route: 048
  3. PRISTIQ EXTENDED-RELEASE [Suspect]
     Active Substance: DESVENLAFAXINE SUCCINATE
     Indication: MAJOR DEPRESSION
     Dosage: UNK
     Route: 048
     Dates: start: 2015

REACTIONS (1)
  - Suicidal ideation [Unknown]
